FAERS Safety Report 5589357-6 (Version None)
Quarter: 2008Q1

REPORT INFORMATION
  Report Type: 
  Country: None (occurrence: None)
  Receive Date: 20080114
  Receipt Date: 20080107
  Transmission Date: 20080703
  Serious: Yes (Hospitalization)
  Sender: FDA-Public Use
  Company Number: US-JNJFOC-20071103342

PATIENT
  Sex: Male
  Weight: 99.34 kg

DRUGS (3)
  1. LEVAQUIN [Suspect]
     Indication: SINUSITIS
     Route: 048
  2. MUCINEX [Concomitant]
     Route: 065
  3. ADVIL LIQUI-GELS [Concomitant]
     Route: 065

REACTIONS (5)
  - CRYING [None]
  - MENTAL STATUS CHANGES [None]
  - MYALGIA [None]
  - PARAESTHESIA [None]
  - PARANOIA [None]
